FAERS Safety Report 9450506 (Version 1)
Quarter: 2013Q3

REPORT INFORMATION
  Report Type: Report from Study
  Country: BE (occurrence: BE)
  Receive Date: 20130809
  Receipt Date: 20130809
  Transmission Date: 20140515
  Serious: Yes (Hospitalization)
  Sender: FDA-Public Use
  Company Number: BE-ABBOTT-13P-013-1128333-00

PATIENT
  Age: 65 Year
  Sex: Female
  Weight: 70 kg

DRUGS (3)
  1. HUMIRA [Suspect]
     Indication: PSORIATIC ARTHROPATHY
     Route: 058
     Dates: start: 20090506
  2. ARAVA [Concomitant]
     Indication: ARTHRITIS
  3. COLECALCIFEROL [Concomitant]
     Indication: ARTHRITIS

REACTIONS (1)
  - Lumbar spinal stenosis [Recovered/Resolved]
